FAERS Safety Report 12461386 (Version 2)
Quarter: 2017Q2

REPORT INFORMATION
  Report Type: Spontaneous
  Country: IT (occurrence: IT)
  Receive Date: 20160613
  Receipt Date: 20170410
  Transmission Date: 20170830
  Serious: Yes (Death, Disabling, Other)
  Sender: FDA-Public Use
  Company Number: IT-BAYER-2016-112089

PATIENT
  Age: 77 Year
  Sex: Female

DRUGS (2)
  1. ACETYLSALICYLIC ACID({=100 MG) [Suspect]
     Active Substance: ASPIRIN
     Dosage: 100 MG, UNK
  2. RIVAROXABAN [Suspect]
     Active Substance: RIVAROXABAN
     Dosage: 20 MG, QD

REACTIONS (2)
  - Ischaemic stroke [Fatal]
  - Drug ineffective [None]
